FAERS Safety Report 9630183 (Version 1)
Quarter: 2013Q4

REPORT INFORMATION
  Report Type: Spontaneous
  Country: JP (occurrence: JP)
  Receive Date: 20131017
  Receipt Date: 20131017
  Transmission Date: 20140711
  Serious: Yes (Hospitalization)
  Sender: FDA-Public Use
  Company Number: JP-ABBVIE-13P-087-1158901-00

PATIENT
  Age: 77 Year
  Sex: Female
  Weight: 35.8 kg

DRUGS (6)
  1. CLARITH [Suspect]
     Indication: ATYPICAL MYCOBACTERIAL INFECTION
     Route: 048
     Dates: start: 20100818, end: 20100822
  2. ETHAMBUTOL HYDROCHLORIDE [Suspect]
     Indication: ATYPICAL MYCOBACTERIAL INFECTION
     Dates: start: 20100818, end: 20100822
  3. RIFAMPICIN [Suspect]
     Indication: ATYPICAL MYCOBACTERIAL INFECTION
     Dates: start: 20100818, end: 20100822
  4. FAMOTIDINE [Concomitant]
     Indication: PROPHYLAXIS
     Route: 048
     Dates: start: 20100818
  5. ADONA [Concomitant]
     Indication: DISEASE COMPLICATION
     Route: 048
  6. TRANSAMIN [Concomitant]
     Indication: DISEASE COMPLICATION
     Route: 048

REACTIONS (2)
  - Hyponatraemia [Recovering/Resolving]
  - Altered state of consciousness [Recovered/Resolved]
